FAERS Safety Report 9820956 (Version 1)
Quarter: 2014Q1

REPORT INFORMATION
  Report Type: Spontaneous
  Country: US (occurrence: None)
  Receive Date: 20140114
  Receipt Date: 20140114
  Transmission Date: 20141002
  Serious: Yes (Other)
  Sender: FDA-Public Use
  Company Number: None

PATIENT
  Age: 67 Year
  Sex: Male
  Weight: 104.33 kg

DRUGS (1)
  1. RABEPRAZOLE SODIUM [Suspect]
     Indication: GASTROOESOPHAGEAL REFLUX DISEASE
     Dosage: 1 PILL TWICE DAILY TAKEN BY MOUTH?
     Route: 048

REACTIONS (2)
  - Condition aggravated [None]
  - Product quality issue [None]
